FAERS Safety Report 23565871 (Version 3)
Quarter: 2024Q1

REPORT INFORMATION
  Report Type: Spontaneous
  Country: MD (occurrence: MD)
  Receive Date: 20240226
  Receipt Date: 20240308
  Transmission Date: 20240410
  Serious: Yes (Hospitalization)
  Sender: FDA-Public Use
  Company Number: None

PATIENT
  Age: 17 Year
  Sex: Male
  Weight: 72 kg

DRUGS (2)
  1. ARTICAINE HYDROCHLORIDE\EPINEPHRINE BITARTRATE [Suspect]
     Active Substance: ARTICAINE HYDROCHLORIDE\EPINEPHRINE BITARTRATE
     Indication: Dental local anaesthesia
     Dosage: NO OF INJECTIONS: 1
     Route: 004
     Dates: start: 20240124, end: 20240124
  2. Diameter G30/0.30 mm, length 25 mm [Concomitant]
     Dates: start: 20240124, end: 20240124

REACTIONS (7)
  - Hypotension [Unknown]
  - Palpitations [Unknown]
  - Headache [Unknown]
  - Nausea [Unknown]
  - Metamorphopsia [Unknown]
  - Vision blurred [Unknown]
  - Injection site pain [Unknown]

NARRATIVE: CASE EVENT DATE: 20240124
